FAERS Safety Report 11417240 (Version 2)
Quarter: 2015Q3

REPORT INFORMATION
  Report Type: Spontaneous
  Country: TR (occurrence: TR)
  Receive Date: 20150825
  Receipt Date: 20150904
  Transmission Date: 20151125
  Serious: Yes (Other)
  Sender: FDA-Public Use
  Company Number: TR-MYLANLABS-2015M1028480

PATIENT

DRUGS (4)
  1. QUETIAPINE [Concomitant]
     Active Substance: QUETIAPINE
     Indication: ANTISOCIAL PERSONALITY DISORDER
     Dosage: 300MG/DAY
     Route: 065
  2. CARBAMAZEPINE. [Suspect]
     Active Substance: CARBAMAZEPINE
     Dosage: 1200MG DAILY
     Route: 065
  3. CARBAMAZEPINE. [Suspect]
     Active Substance: CARBAMAZEPINE
     Indication: ANTISOCIAL PERSONALITY DISORDER
     Dosage: 400MG/DAY AND INCREASED TO 800MG DAILY AT DAY 4
     Route: 065
  4. CARBAMAZEPINE. [Suspect]
     Active Substance: CARBAMAZEPINE
     Dosage: 800 MG DAILY AND INCREASED TO 1200MG DAILY AT DAY 8
     Route: 065

REACTIONS (8)
  - Eosinophilia [Recovered/Resolved]
  - Pyrexia [Recovered/Resolved]
  - Drug reaction with eosinophilia and systemic symptoms [Recovering/Resolving]
  - Thrombocytopenic purpura [Recovering/Resolving]
  - Inflammation [Unknown]
  - Rash maculo-papular [Recovered/Resolved]
  - Thrombocytopenia [Recovering/Resolving]
  - Hepatitis [Unknown]
